FAERS Safety Report 18520317 (Version 2)
Quarter: 2020Q4

REPORT INFORMATION
  Report Type: Spontaneous
  Country: FR (occurrence: FR)
  Receive Date: 20201119
  Receipt Date: 20201203
  Transmission Date: 20210114
  Serious: Yes (Hospitalization, Other)
  Sender: FDA-Public Use
  Company Number: FR-MACLEODS PHARMACEUTICALS US LTD-MAC2020029146

PATIENT

DRUGS (9)
  1. PREDNISONE. [Concomitant]
     Active Substance: PREDNISONE
     Indication: NECROTISING MYOSITIS
     Dosage: 10 MILLIGRAM, QD
     Route: 065
     Dates: start: 2003
  2. PREDNISONE. [Concomitant]
     Active Substance: PREDNISONE
     Dosage: 60 MILLIGRAM, QD, DOSE INCREASED
     Route: 065
     Dates: start: 201812
  3. METHOTREXATE. [Concomitant]
     Active Substance: METHOTREXATE
     Indication: NECROTISING MYOSITIS
     Dosage: 25 MILLIGRAM, Q.W.
     Route: 065
     Dates: start: 2003
  4. RISEDRONATE TABLET [Suspect]
     Active Substance: RISEDRONATE SODIUM
     Indication: ASTHENIA
     Dosage: 75 MILLIGRAM
     Route: 065
     Dates: start: 201901, end: 201902
  5. RISEDRONATE TABLET [Suspect]
     Active Substance: RISEDRONATE SODIUM
     Indication: VITAMIN D DECREASED
  6. VITAMIN D SUPPLEMENTS [Concomitant]
     Indication: ASTHENIA
     Dosage: UNK
     Route: 065
  7. PREDNISONE. [Concomitant]
     Active Substance: PREDNISONE
     Dosage: 40 MILLIGRAM, QD
     Route: 065
     Dates: start: 201902
  8. PREDNISONE. [Concomitant]
     Active Substance: PREDNISONE
     Dosage: 15 MILLIGRAM, QD
     Route: 065
     Dates: start: 202006
  9. CALCIUM SUPPLEMENTS [Concomitant]
     Active Substance: CALCIUM
     Indication: ASTHENIA
     Dosage: UNK
     Route: 065

REACTIONS (4)
  - Condition aggravated [Recovered/Resolved]
  - Acute phase reaction [Recovered/Resolved]
  - Autoimmune myositis [Recovered/Resolved]
  - Rhabdomyolysis [Recovered/Resolved]

NARRATIVE: CASE EVENT DATE: 201901
